FAERS Safety Report 5880290-9 (Version None)
Quarter: 2008Q3

REPORT INFORMATION
  Report Type: 
  Country: None (occurrence: None)
  Receive Date: 20080912
  Receipt Date: 20080908
  Transmission Date: 20090109
  Serious: Yes (Other)
  Sender: FDA-Public Use
  Company Number: PHEH2008US07977

PATIENT
  Sex: Female

DRUGS (2)
  1. MIACALCIN [Suspect]
     Route: 045
  2. FOSAMAX [Suspect]

REACTIONS (2)
  - DRUG INEFFECTIVE [None]
  - RESORPTION BONE INCREASED [None]
